FAERS Safety Report 10495273 (Version 4)
Quarter: 2014Q4

REPORT INFORMATION
  Report Type: Spontaneous
  Country: JP (occurrence: JP)
  Receive Date: 20141003
  Receipt Date: 20141126
  Transmission Date: 20150528
  Serious: Yes (Death, Other)
  Sender: FDA-Public Use
  Company Number: JP-PFIZER INC-2014212430

PATIENT
  Age: 61 Year
  Sex: Male
  Weight: 50 kg

DRUGS (21)
  1. CAMPTO [Suspect]
     Active Substance: IRINOTECAN
     Indication: PANCREATIC CARCINOMA
     Dosage: 232.2 MG/BODY (150 MG/M2), 1X/DAY
     Route: 041
     Dates: start: 20140702, end: 20140702
  2. BUSCOPAN [Concomitant]
     Active Substance: BUTYLSCOPOLAMINE BROMIDE
     Dosage: UNK
     Dates: start: 20140702, end: 20140702
  3. DEXART [Concomitant]
     Active Substance: DEXAMETHASONE SODIUM PHOSPHATE
     Dosage: UNK
     Dates: start: 20140702, end: 20140702
  4. AMITIZA [Concomitant]
     Active Substance: LUBIPROSTONE
     Dosage: UNK
     Dates: start: 20140702, end: 20140703
  5. PARIET [Concomitant]
     Active Substance: RABEPRAZOLE SODIUM
     Dosage: UNK
     Dates: start: 20140702, end: 20140704
  6. ENSURE [Concomitant]
     Active Substance: AMINO ACIDS\DEXTROSE\ELECTROLYTES NOS\SOYBEAN OIL\VITAMINS
     Dosage: UNK
     Dates: start: 20140703, end: 20140704
  7. FERROMIA [Concomitant]
     Active Substance: FERROUS CITRATE
     Dosage: UNK
     Dates: start: 20140714
  8. 5-FU [Suspect]
     Active Substance: FLUOROURACIL
     Indication: PANCREATIC CARCINOMA
     Dosage: 3715.2 MG/BODY/D1-2 (2400 MG/M2), ONCE IN 2 DAYS
     Route: 041
     Dates: start: 20140702, end: 20140702
  9. OXYCONTIN [Concomitant]
     Active Substance: OXYCODONE HYDROCHLORIDE
     Dosage: SLOW RELEASE TABLET
     Dates: start: 20140702, end: 20140704
  10. LEVOFOLINATE [Concomitant]
     Active Substance: LEVOLEUCOVORIN CALCIUM
     Indication: PANCREATIC CARCINOMA
     Dosage: 309.6 MG/BODY, (200 MG/M2) FOR IV INFUSION
     Route: 041
     Dates: start: 20140702, end: 20140702
  11. DECADRON [Concomitant]
     Active Substance: DEXAMETHASONE
     Dosage: UNK
     Dates: start: 20140703, end: 20140704
  12. EMEND [Concomitant]
     Active Substance: APREPITANT
     Dosage: UNK
     Dates: start: 20140702, end: 20140704
  13. ELPLAT [Suspect]
     Active Substance: OXALIPLATIN
     Indication: PANCREATIC CARCINOMA
     Dosage: 131.6 MG/BODY (85 MG/M2), 1X/DAY
     Route: 041
     Dates: start: 20140702, end: 20140702
  14. ASPARA POTASSIUM [Concomitant]
     Active Substance: POTASSIUM ASPARTATE
     Dosage: UNK
     Dates: start: 20140702, end: 20140714
  15. OXINORM [Concomitant]
     Active Substance: OXYCODONE HYDROCHLORIDE
     Dosage: POWDER (EXCEPT DPO)
     Dates: start: 20140702, end: 20140704
  16. URSO [Concomitant]
     Active Substance: URSODIOL
     Dosage: UNK
     Dates: start: 20140702, end: 20140704
  17. LOXOPROFEN [Concomitant]
     Active Substance: LOXOPROFEN
     Dosage: UNK
     Dates: start: 20140702, end: 20140708
  18. NAIXAN [Concomitant]
     Active Substance: NAPROXEN SODIUM
     Dosage: UNK
     Dates: start: 20140708, end: 20140710
  19. RED BLOOD CELLS, LEUCOCYTE DEPLETED [Concomitant]
     Active Substance: HUMAN RED BLOOD CELL
     Dosage: UNK
     Dates: start: 20140710, end: 20140710
  20. FESIN [Concomitant]
     Active Substance: IRON SUCROSE
     Dosage: UNK
     Dates: start: 20140714, end: 20140714
  21. L-ASPARTATE POTASSIUM [Concomitant]
     Dosage: UNK
     Dates: start: 20140715

REACTIONS (7)
  - Disease progression [Fatal]
  - Diarrhoea [Recovered/Resolved]
  - Pyrexia [Recovering/Resolving]
  - Hypokalaemia [Recovering/Resolving]
  - Pancreatic carcinoma [Fatal]
  - Platelet count decreased [Recovering/Resolving]
  - Anaemia [Recovering/Resolving]

NARRATIVE: CASE EVENT DATE: 20140702
